FAERS Safety Report 18998104 (Version 1)
Quarter: 2021Q1

REPORT INFORMATION
  Report Type: Spontaneous
  Country: DE (occurrence: DE)
  Receive Date: 20210311
  Receipt Date: 20210311
  Transmission Date: 20210420
  Serious: Yes (Hospitalization)
  Sender: FDA-Public Use
  Company Number: DE-TEVA-2021-DE-1888022

PATIENT
  Age: 90 Year
  Sex: Female

DRUGS (8)
  1. METOHEXAL SUCC 47,5MG [Suspect]
     Active Substance: METOPROLOL SUCCINATE
     Dosage: 1?0?0.5?0
     Route: 048
  2. ZOPICLON [Suspect]
     Active Substance: ZOPICLONE
     Dosage: .5 DOSAGE FORMS DAILY; 7.5 MG, 0?0?0?0.5
     Route: 048
  3. SIMVASTATIN. [Concomitant]
     Active Substance: SIMVASTATIN
     Dosage: 20 MILLIGRAM DAILY; 0?0?0?1
     Route: 048
  4. APIXABAN [Concomitant]
     Active Substance: APIXABAN
     Dosage: 10 MILLIGRAM DAILY; 1?0?1?0
     Route: 048
  5. VIGANTOL 1000I.E. VITAMIN D3 [Concomitant]
     Dosage: 1 DOSAGE FORMS DAILY; 1?0?0?0
     Route: 048
  6. AMIODARON [Suspect]
     Active Substance: AMIODARONE
     Dosage: 200 MILLIGRAM DAILY; 1?0?0?0
     Route: 048
  7. TILIDINE/NALOXONE [Suspect]
     Active Substance: NALOXONE HYDROCHLORIDE\TILIDINE HYDROCHLORIDE
     Dosage: 1 DOSAGE FORMS DAILY; 4|50 MG, 0?0?1?0
     Route: 048
  8. OMEPRAZOL [Concomitant]
     Active Substance: OMEPRAZOLE
     Dosage: 20 MILLIGRAM DAILY; 1?0?0?0
     Route: 048

REACTIONS (5)
  - Medication error [Unknown]
  - Fall [Unknown]
  - Dizziness [Unknown]
  - Product prescribing error [Unknown]
  - Syncope [Unknown]
